FAERS Safety Report 10180195 (Version 1)
Quarter: 2014Q2

REPORT INFORMATION
  Report Type: Spontaneous
  Country: US (occurrence: US)
  Receive Date: 20140519
  Receipt Date: 20140519
  Transmission Date: 20141212
  Serious: No
  Sender: FDA-Public Use
  Company Number: US-AMGEN INC.-USASP2013086608

PATIENT
  Age: 71 Year
  Sex: Female

DRUGS (4)
  1. PROLIA [Suspect]
     Indication: OSTEOPOROSIS POSTMENOPAUSAL
     Dosage: UNK
     Route: 065
     Dates: start: 201211
  2. MULTIVITAMIN                       /00097801/ [Concomitant]
  3. FISH OIL [Concomitant]
  4. EYE DROPS                          /00256502/ [Concomitant]

REACTIONS (2)
  - Tooth fracture [Unknown]
  - Tooth disorder [Unknown]
